FAERS Safety Report 11619830 (Version 3)
Quarter: 2016Q1

REPORT INFORMATION
  Report Type: Report from Study
  Country: US (occurrence: US)
  Receive Date: 20151012
  Receipt Date: 20160121
  Transmission Date: 20160525
  Serious: No
  Sender: FDA-Public Use
  Company Number: US-AMGEN-USASL2015104454

PATIENT
  Age: 48 Year
  Sex: Female

DRUGS (1)
  1. ENBREL [Suspect]
     Active Substance: ETANERCEPT
     Indication: RHEUMATOID ARTHRITIS
     Dosage: 50 MG, QWK
     Route: 065
     Dates: start: 20151006

REACTIONS (5)
  - Wrong technique in product usage process [Unknown]
  - Nasopharyngitis [Unknown]
  - Drug effect incomplete [Unknown]
  - Injection site pain [Unknown]
  - Injection site nodule [Unknown]

NARRATIVE: CASE EVENT DATE: 2015
